FAERS Safety Report 4526455-X (Version None)
Quarter: 2004Q4

REPORT INFORMATION
  Report Type: 
  Country: None (occurrence: None)
  Receive Date: 20041214
  Receipt Date: 20041203
  Transmission Date: 20050328
  Serious: Yes (Disabling)
  Sender: FDA-Public Use
  Company Number: FR-JNJFOC-20041201320

PATIENT
  Sex: Female

DRUGS (4)
  1. EPITOMAX [Suspect]
     Route: 049
     Dates: start: 20041014, end: 20041111
  2. EPITOMAX [Suspect]
     Route: 049
     Dates: start: 20041014, end: 20041111
  3. EPITOMAX [Suspect]
     Indication: MIGRAINE PROPHYLAXIS
     Route: 049
     Dates: start: 20041014, end: 20041111
  4. ZOMIG [Concomitant]
     Indication: MIGRAINE
     Dosage: 15 TO 22 TABLETS PER MONTH
     Route: 065

REACTIONS (8)
  - AFFECTIVE DISORDER [None]
  - DIARRHOEA [None]
  - FATIGUE [None]
  - INSOMNIA [None]
  - PAIN [None]
  - PARAESTHESIA [None]
  - RAYNAUD'S PHENOMENON [None]
  - TEMPERATURE INTOLERANCE [None]
